FAERS Safety Report 18194874 (Version 1)
Quarter: 2020Q3

REPORT INFORMATION
  Report Type: Report from Study
  Country: US (occurrence: US)
  Receive Date: 20200825
  Receipt Date: 20200825
  Transmission Date: 20201103
  Serious: Yes (Other)
  Sender: FDA-Public Use
  Company Number: US-IPSEN BIOPHARMACEUTICALS, INC.-2020-15212

PATIENT

DRUGS (2)
  1. PEGVISOMANT [Suspect]
     Active Substance: PEGVISOMANT
     Indication: ACROMEGALY
     Route: 065
  2. SOMATULINE [Suspect]
     Active Substance: LANREOTIDE ACETATE
     Indication: ACROMEGALY
     Route: 065

REACTIONS (32)
  - Decreased appetite [Unknown]
  - Nausea [Unknown]
  - Vomiting [Unknown]
  - Injection site nodule [Unknown]
  - Lipohypertrophy [Unknown]
  - Pain [Unknown]
  - Swelling [Unknown]
  - Hypoglycaemia [Unknown]
  - Injection site rash [Unknown]
  - Alopecia [Unknown]
  - Drug ineffective [Unknown]
  - Hypoaesthesia [Unknown]
  - Pain in jaw [Unknown]
  - Fatigue [Unknown]
  - Nephrolithiasis [Unknown]
  - Migraine [Unknown]
  - Anger [Unknown]
  - Arthralgia [Unknown]
  - Injection site bruising [Unknown]
  - Hernia [Unknown]
  - Vertigo [Unknown]
  - Soft tissue mass [Unknown]
  - Diarrhoea [Unknown]
  - Dizziness [Unknown]
  - Faeces discoloured [Unknown]
  - Alanine aminotransferase increased [Recovered/Resolved]
  - Sinusitis [Unknown]
  - Weight increased [Unknown]
  - Back pain [Unknown]
  - Osteoporosis [Unknown]
  - Aspartate aminotransferase increased [Recovered/Resolved]
  - Headache [Unknown]
